FAERS Safety Report 25275910 (Version 1)
Quarter: 2025Q2

REPORT INFORMATION
  Report Type: Spontaneous
  Country: US (occurrence: US)
  Receive Date: 20250507
  Receipt Date: 20250507
  Transmission Date: 20250717
  Serious: No
  Sender: Kenvue
  Company Number: US-KENVUE-20250403976

PATIENT
  Age: 79 Year
  Sex: Female

DRUGS (2)
  1. IMODIUM MULTI-SYMPTOM RELIEF [Suspect]
     Active Substance: DIMETHICONE\LOPERAMIDE HYDROCHLORIDE
     Indication: Diarrhoea
     Dosage: 2 DOSAGE FORM, TWICE A DAY
     Route: 048
     Dates: start: 202501
  2. IMODIUM MULTI-SYMPTOM RELIEF [Suspect]
     Active Substance: DIMETHICONE\LOPERAMIDE HYDROCHLORIDE
     Indication: Flatulence

REACTIONS (3)
  - Incorrect product administration duration [Unknown]
  - Incorrect dose administered [Unknown]
  - Product packaging issue [Unknown]

NARRATIVE: CASE EVENT DATE: 20250101
